FAERS Safety Report 8173128-0 (Version None)
Quarter: 2012Q1

REPORT INFORMATION
  Report Type: 
  Country: None (occurrence: None)
  Receive Date: 20120104
  Receipt Date: 20111107
  Transmission Date: 20120608
  Serious: No
  Sender: FDA-Public Use
  Company Number: 2011HGS-002753

PATIENT
  Age: 45 Year
  Sex: Female
  Weight: 63.9572 kg

DRUGS (16)
  1. LUNESTA (ESZOPICLONE) (ESZOPICLONE) [Concomitant]
  2. FOLIC ACID [Concomitant]
  3. ORAL CONTRACEPTIVE PILL (ORAL CONTRACEPTIVE NOS) (ORAL CONTRACEPTIVE N [Concomitant]
  4. MERCAPTOPURINE [Concomitant]
  5. NORFLEX (ORPHENADRINE CITRATE) (ORPHENADRINE CITRATE) [Concomitant]
  6. PLAQUENIL (HYDROXYCHLOROQUINE SULFATE) (HYDROXYCHLOROQUINE SULFATE) [Concomitant]
  7. MVI (MVI) (VITAMINS NOS) [Concomitant]
  8. DICLOFENAC XR (DICLOFENAC SODIUM) (DICLOFENAC SODIUM) [Concomitant]
  9. LORATADINE (LORATADINE) (LORATADINE) [Concomitant]
  10. ATELVIA (RISEDRONATE SODIUM) (RISEDRONATE SODIUM) [Concomitant]
  11. LATANOPROST (LATANOPROST) (LATANOPROST) [Concomitant]
  12. PROTONIX (PANTOPRAZOLE SODIUM) (PANTOPRAZOLE SODIUM) [Concomitant]
  13. IRON (IRON) (IRON) [Concomitant]
  14. BENLYSTA [Suspect]
     Indication: SYSTEMIC LUPUS ERYTHEMATOSUS
     Dosage: 10 MG/KG, 1 IN 28 D, INTRAVENOUS DRIP
     Route: 041
     Dates: start: 20111014
  15. PREDNISONE [Concomitant]
  16. LASIX (LASIX/SCH/) (FUROSEMIDE, FUROSEMIDE SODIUM) [Concomitant]

REACTIONS (2)
  - ABDOMINAL PAIN [None]
  - DIARRHOEA [None]
